FAERS Safety Report 6794534-2 (Version None)
Quarter: 2010Q2

REPORT INFORMATION
  Report Type: 
  Country: None (occurrence: None)
  Receive Date: 20100625
  Receipt Date: 20100422
  Transmission Date: 20101027
  Serious: No
  Sender: FDA-Public Use
  Company Number: A0843891A

PATIENT
  Age: 18 Year
  Sex: Female

DRUGS (3)
  1. VENTOLIN [Suspect]
     Dosage: 2PUFF AS REQUIRED
     Route: 055
     Dates: start: 20070615
  2. LORATADINE [Concomitant]
  3. AVIANE-28 [Concomitant]

REACTIONS (2)
  - DRUG INEFFECTIVE [None]
  - PRODUCT QUALITY ISSUE [None]
